FAERS Safety Report 9629795 (Version 2)
Quarter: 2013Q4

REPORT INFORMATION
  Report Type: Spontaneous
  Country: NO (occurrence: NO)
  Receive Date: 20131017
  Receipt Date: 20131209
  Transmission Date: 20140711
  Serious: Yes (Other)
  Sender: FDA-Public Use
  Company Number: NO-TEVA-436695ISR

PATIENT
  Sex: Male

DRUGS (11)
  1. FENTANYL [Suspect]
     Dosage: 50 MCG/H
     Route: 065
  2. SOBRIL [Suspect]
     Dosage: 10 TO 15 MG WHEN NEEDED
     Route: 065
  3. PROPOFOL [Suspect]
     Indication: SEDATION
     Dosage: 0.7 MG/KG/H
     Route: 065
  4. PROPOFOL [Suspect]
     Dosage: DECREASED RAPIDLY TO 0.3 MG/KG/H
  5. DEXDOR [Suspect]
     Indication: SEDATION
     Dosage: 0.7 MG/KG/H DECREASED RAPIDLY TO 0.3 MG/KG/H; 0.2 TO 0.7 MG THROUGHOUT THE DAY
     Route: 065
  6. DEXDOR [Suspect]
     Dosage: 1.4 MG/KG/H
     Route: 065
  7. MIDAZOLAM [Suspect]
     Dosage: FROM DAY 5 POST OP: 6-10 MG/H
     Route: 065
  8. MIDAZOLAM [Suspect]
     Route: 065
  9. HALDOL [Suspect]
     Dosage: DAY 3 POSTOP: 2,5 MG IV, DAY 5 POST OP:2.5 MG X 4
     Route: 065
  10. HALDOL [Suspect]
     Route: 042
  11. KETORAX [Suspect]
     Dosage: 1-2 MG IF NEEDED
     Route: 042

REACTIONS (4)
  - Bradycardia [Recovering/Resolving]
  - Restlessness [Recovering/Resolving]
  - Respiratory arrest [Recovering/Resolving]
  - Hypoventilation [Recovering/Resolving]
